FAERS Safety Report 4896196-8 (Version None)
Quarter: 2006Q1

REPORT INFORMATION
  Report Type: 
  Country: None (occurrence: None)
  Receive Date: 20060126
  Receipt Date: 20060116
  Transmission Date: 20060701
  Serious: Yes (Hospitalization)
  Sender: FDA-Public Use
  Company Number: 002#1#2005-00363

PATIENT
  Age: 39 Year
  Sex: Male
  Weight: 151.955 kg

DRUGS (9)
  1. EDEX [Suspect]
     Indication: ERECTILE DYSFUNCTION
     Dosage: 15MCG, 1 ONCE, INTRACAVERNOUS
     Route: 017
     Dates: start: 20051111, end: 20051111
  2. METOPROLOL [Concomitant]
  3. ATORVASTATIN CALCIUM [Concomitant]
  4. WARFARIN SODIUM [Concomitant]
  5. ENALAPRIL [Concomitant]
  6. AMIODARONE [Concomitant]
  7. GLIPIZIDE [Concomitant]
  8. DILTIAZEM HCL [Concomitant]
  9. TESTOSTERONE [Concomitant]

REACTIONS (3)
  - DEVICE FAILURE [None]
  - ECCHYMOSIS [None]
  - PHARMACEUTICAL PRODUCT COMPLAINT [None]
